FAERS Safety Report 20632509 (Version 1)
Quarter: 2022Q1

REPORT INFORMATION
  Report Type: Spontaneous
  Country: CA (occurrence: CA)
  Receive Date: 20220324
  Receipt Date: 20220324
  Transmission Date: 20220424
  Serious: Yes (Hospitalization)
  Sender: FDA-Public Use
  Company Number: CA-APOTEX-2022AP004933

PATIENT
  Age: 39 Year
  Sex: Female
  Weight: 115 kg

DRUGS (17)
  1. CARBAMAZEPINE [Interacting]
     Active Substance: CARBAMAZEPINE
     Indication: Epilepsy
     Dosage: 600 MILLIGRAM, BID
     Route: 048
     Dates: start: 2010
  2. AMIODARONE [Suspect]
     Active Substance: AMIODARONE
     Indication: Tachycardia
     Dosage: 4000 MILLIGRAM
     Route: 048
     Dates: start: 20210509
  3. AMIODARONE [Suspect]
     Active Substance: AMIODARONE
     Indication: Atrial fibrillation
     Dosage: 400 MILLIGRAM, QD
     Route: 048
     Dates: start: 20210514
  4. AMIODARONE [Suspect]
     Active Substance: AMIODARONE
     Dosage: 400 MILLIGRAM, Q.AM
     Route: 048
     Dates: start: 20210603
  5. AMIODARONE [Suspect]
     Active Substance: AMIODARONE
     Dosage: 200 MILLIGRAM, Q.H.S.
     Route: 048
     Dates: start: 20210603
  6. AMIODARONE [Suspect]
     Active Substance: AMIODARONE
     Dosage: 100 MILLIGRAM, QD
     Route: 048
     Dates: start: 20210618
  7. AMIODARONE [Interacting]
     Active Substance: AMIODARONE
     Indication: Tachycardia
     Dosage: 150 MILLIGRAM (1 DOSE)
     Route: 042
     Dates: start: 20210509
  8. AMIODARONE [Interacting]
     Active Substance: AMIODARONE
     Indication: Atrial fibrillation
     Dosage: 600 MILLIGRAM OVER 10 HRS
     Route: 042
     Dates: start: 20210509
  9. APIXABAN [Interacting]
     Active Substance: APIXABAN
     Indication: Anticoagulant therapy
     Dosage: 10 MILLIGRAM, BID
     Route: 065
     Dates: start: 20210512, end: 20210517
  10. APIXABAN [Interacting]
     Active Substance: APIXABAN
     Dosage: 5 MILLIGRAM, BID
     Route: 065
     Dates: start: 20210518, end: 20210526
  11. APIXABAN [Interacting]
     Active Substance: APIXABAN
     Dosage: 6.25 MILLIGRAM, BID
     Route: 065
     Dates: start: 20210527, end: 20210823
  12. APIXABAN [Interacting]
     Active Substance: APIXABAN
     Dosage: 7.5 MILLIGRAM, BID
     Route: 065
     Dates: start: 20210824
  13. TOCILIZUMAB [Suspect]
     Active Substance: TOCILIZUMAB
     Indication: COVID-19 pneumonia
     Dosage: 800 MILLIGRAM, (1 DOSE)
     Route: 042
     Dates: start: 20210508
  14. LAMOTRIGINE [Concomitant]
     Active Substance: LAMOTRIGINE
     Indication: Epilepsy
     Dosage: 100 MILLIGRAM, BID
     Route: 048
     Dates: start: 2010
  15. DEXAMETHASONE [Concomitant]
     Active Substance: DEXAMETHASONE
     Indication: Anticoagulant therapy
     Dosage: 6 MILLIGRAM, QD
     Route: 048
     Dates: start: 20210508
  16. ENOXAPARIN [Concomitant]
     Active Substance: ENOXAPARIN
     Indication: Atrial fibrillation
     Dosage: 120 MILLIGRAM, Q.12H
     Route: 065
     Dates: start: 20210508, end: 20210812
  17. ENOXAPARIN [Concomitant]
     Active Substance: ENOXAPARIN
     Indication: Tachycardia

REACTIONS (2)
  - Drug interaction [Unknown]
  - Drug level changed [Unknown]
